FAERS Safety Report 9701963 (Version 1)
Quarter: 2013Q4

REPORT INFORMATION
  Report Type: Spontaneous
  Country: IT (occurrence: IT)
  Receive Date: 20131121
  Receipt Date: 20131121
  Transmission Date: 20140711
  Serious: Yes (Hospitalization)
  Sender: FDA-Public Use
  Company Number: IT-ASTRAZENECA-2013SE84694

PATIENT
  Age: 20341 Day
  Sex: Female

DRUGS (2)
  1. SEROQUEL [Suspect]
     Indication: DRUG ABUSE
     Route: 048
     Dates: start: 20131013, end: 20131013
  2. DEPAKIN CHRONO [Concomitant]

REACTIONS (4)
  - Drug abuse [Recovered/Resolved]
  - Speech disorder [Recovered/Resolved]
  - Sopor [Recovered/Resolved]
  - Tachycardia [Recovered/Resolved]
